FAERS Safety Report 5808254-1 (Version None)
Quarter: 2008Q3

REPORT INFORMATION
  Report Type: 
  Country: None (occurrence: None)
  Receive Date: 20080709
  Receipt Date: 20080625
  Transmission Date: 20090109
  Serious: Yes (Hospitalization)
  Sender: FDA-Public Use
  Company Number: 14512

PATIENT

DRUGS (1)
  1. METOPROLOL SUCCINATE EXTENDED RELEASE [Suspect]

REACTIONS (1)
  - BLOOD PRESSURE INCREASED [None]
